FAERS Safety Report 5715978-3 (Version None)
Quarter: 2008Q2

REPORT INFORMATION
  Report Type: 
  Country: None (occurrence: None)
  Receive Date: 20080424
  Receipt Date: 20080411
  Transmission Date: 20081010
  Serious: Yes (Hospitalization)
  Sender: FDA-Public Use
  Company Number: IE-ELI_LILLY_AND_COMPANY-IE200804003260

PATIENT
  Sex: Male

DRUGS (3)
  1. ALIMTA [Suspect]
     Indication: NON-SMALL CELL LUNG CANCER
     Dosage: 400 MG/M2, UNKNOWN
     Route: 065
     Dates: start: 20080401, end: 20080401
  2. VITAMIN B-12 [Concomitant]
     Indication: PROPHYLAXIS
     Dosage: UNK, UNKNOWN
  3. FOLIC ACID [Concomitant]
     Indication: PROPHYLAXIS
     Dosage: UNK, UNKNOWN

REACTIONS (2)
  - NEUTROPENIA [None]
  - RENAL FAILURE [None]
